FAERS Safety Report 6070686-7 (Version None)
Quarter: 2009Q1

REPORT INFORMATION
  Report Type: 
  Country: None (occurrence: None)
  Receive Date: 20090209
  Receipt Date: 20090128
  Transmission Date: 20090719
  Serious: Yes (Death, Hospitalization)
  Sender: FDA-Public Use
  Company Number: PR-PFIZER INC-2008101131

PATIENT

DRUGS (8)
  1. DETRUSITOL SR [Suspect]
     Dosage: 4 MG, 1X/DAY
  2. VASTAREL [Suspect]
  3. SIMVASTATIN [Suspect]
  4. CARDIAC GLYCOSIDES [Suspect]
  5. ATENOLOL [Suspect]
  6. ASPIRIN [Suspect]
  7. ANTIHYPERTENSIVES [Concomitant]
  8. VASTAREL [Suspect]

REACTIONS (1)
  - STEVENS-JOHNSON SYNDROME [None]
